FAERS Safety Report 4992711-4 (Version None)
Quarter: 2006Q1

REPORT INFORMATION
  Report Type: 
  Country: None (occurrence: None)
  Receive Date: 20060313
  Receipt Date: 20060128
  Transmission Date: 20060701
  Serious: No
  Sender: FDA-Public Use
  Company Number: 2006-BP-01069BP

PATIENT
  Age: 73 Year
  Sex: Female

DRUGS (10)
  1. SPIRIVA [Suspect]
     Indication: ASTHMA
     Dosage: 18 MCG (18 MCG,QD),IH
     Dates: start: 20051201, end: 20060125
  2. SPIRIVA [Suspect]
     Indication: CHRONIC OBSTRUCTIVE PULMONARY DISEASE
     Dosage: 18 MCG (18 MCG,QD),IH
     Dates: start: 20051201, end: 20060125
  3. BUDESONIDE [Concomitant]
  4. FORMOTEROL (FORMOTEROL) [Concomitant]
  5. ALBUTEROL [Concomitant]
  6. NORVASC [Concomitant]
  7. DIOVAN HCT (CO-DIOVAN) [Concomitant]
  8. LORATADINE [Concomitant]
  9. SINGULAIR [Concomitant]
  10. ZOLOFT [Concomitant]

REACTIONS (3)
  - BACK PAIN [None]
  - CHEST PAIN [None]
  - DYSPNOEA [None]
